FAERS Safety Report 15531946 (Version 1)
Quarter: 2018Q4

REPORT INFORMATION
  Report Type: Spontaneous
  Country: GR (occurrence: GR)
  Receive Date: 20181019
  Receipt Date: 20181019
  Transmission Date: 20190205
  Serious: Yes (Other)
  Sender: FDA-Public Use
  Company Number: GR-ROCHE-2201279

PATIENT
  Age: 76 Year
  Sex: Female

DRUGS (1)
  1. LUCENTIS [Suspect]
     Active Substance: RANIBIZUMAB
     Indication: RETINAL ANEURYSM
     Dosage: 0.5 MG/0.05 ML
     Route: 050

REACTIONS (3)
  - Off label use [Unknown]
  - Retinal haemorrhage [Unknown]
  - Product use in unapproved indication [Unknown]
